FAERS Safety Report 6833868-X (Version None)
Quarter: 2010Q3

REPORT INFORMATION
  Report Type: 
  Country: None (occurrence: None)
  Receive Date: 20100712
  Receipt Date: 20070403
  Transmission Date: 20110219
  Serious: No
  Sender: FDA-Public Use
  Company Number: US-PFIZER INC-2007027886

PATIENT
  Sex: Male
  Weight: 158.76 kg

DRUGS (6)
  1. CHANTIX [Suspect]
     Indication: SMOKING CESSATION THERAPY
     Dates: start: 20070301
  2. LOTENSIN [Concomitant]
  3. PREVACID [Concomitant]
  4. CELEBREX [Concomitant]
  5. ETANERCEPT [Concomitant]
  6. METHOTREXATE [Concomitant]

REACTIONS (8)
  - ABNORMAL DREAMS [None]
  - COGNITIVE DISORDER [None]
  - DECREASED APPETITE [None]
  - DRUG INEFFECTIVE [None]
  - FATIGUE [None]
  - FEELING ABNORMAL [None]
  - INSOMNIA [None]
  - MALAISE [None]
